FAERS Safety Report 19830691 (Version 1)
Quarter: 2021Q3

REPORT INFORMATION
  Report Type: Spontaneous
  Country: US (occurrence: US)
  Receive Date: 20210915
  Receipt Date: 20210915
  Transmission Date: 20211014
  Serious: Yes (Death)
  Sender: FDA-Public Use
  Company Number: US-ROCHE-2910700

PATIENT
  Age: 80 Year
  Sex: Female

DRUGS (15)
  1. SIMVASTATIN. [Concomitant]
     Active Substance: SIMVASTATIN
  2. CALCIUM D3 [Concomitant]
     Active Substance: CALCIUM\CHOLECALCIFEROL
     Dosage: 250?125
  3. FISH OIL [Concomitant]
     Active Substance: FISH OIL
  4. PENICILLIN VK [Concomitant]
     Active Substance: PENICILLIN V POTASSIUM
  5. GLIPIZIDE. [Concomitant]
     Active Substance: GLIPIZIDE
  6. ESBRIET [Suspect]
     Active Substance: PIRFENIDONE
     Indication: IDIOPATHIC PULMONARY FIBROSIS
     Dosage: 1 TABLET, ONGOING?NO
     Route: 048
     Dates: start: 20171201, end: 202108
  7. LIVALO [Concomitant]
     Active Substance: PITAVASTATIN CALCIUM
  8. MELOXICAM. [Concomitant]
     Active Substance: MELOXICAM
  9. VENTOLIN HFA [Concomitant]
     Active Substance: ALBUTEROL SULFATE
  10. PENICILLIN [Concomitant]
     Active Substance: PENICILLIN
  11. CENTRUM SILVER [Concomitant]
     Active Substance: MINERALS\VITAMINS
     Dosage: CHW
  12. PERCOCET [Concomitant]
     Active Substance: ACETAMINOPHEN\OXYCODONE HYDROCHLORIDE
     Dosage: 2.5?325
  13. ATENOLOL. [Concomitant]
     Active Substance: ATENOLOL
  14. PREDNISONE. [Concomitant]
     Active Substance: PREDNISONE
  15. ASPIRIN. [Concomitant]
     Active Substance: ASPIRIN
     Dosage: CHW

REACTIONS (1)
  - Death [Fatal]

NARRATIVE: CASE EVENT DATE: 202108
